FAERS Safety Report 7883769-3 (Version None)
Quarter: 2011Q4

REPORT INFORMATION
  Report Type: 
  Country: None (occurrence: None)
  Receive Date: 20111102
  Receipt Date: 20111025
  Transmission Date: 20120403
  Serious: Yes (Death, Hospitalization, Other)
  Sender: FDA-Public Use
  Company Number: US-CELGENEUS-163-21880-11103130

PATIENT
  Sex: Female

DRUGS (3)
  1. DEXAMETHASONE [Suspect]
     Indication: MULTIPLE MYELOMA
     Dosage: 20 MILLIGRAM
     Route: 041
     Dates: start: 20110927
  2. REVLIMID [Suspect]
     Indication: MULTIPLE MYELOMA
     Dosage: 25 MILLIGRAM
     Route: 048
     Dates: end: 20111003
  3. ELOTUZUMAB [Suspect]
     Indication: MULTIPLE MYELOMA
     Route: 041
     Dates: start: 20110927

REACTIONS (4)
  - SEPSIS [None]
  - PNEUMONIA [None]
  - CELLULITIS [None]
  - MULTI-ORGAN FAILURE [None]
